FAERS Safety Report 20309478 (Version 2)
Quarter: 2022Q3

REPORT INFORMATION
  Report Type: Spontaneous
  Country: US (occurrence: US)
  Receive Date: 20220107
  Receipt Date: 20220912
  Transmission Date: 20221027
  Serious: Yes (Other)
  Sender: FDA-Public Use
  Company Number: US-SA-SAC20220104000151

PATIENT
  Age: 29 Year
  Sex: Female

DRUGS (1)
  1. ZANTAC [Suspect]
     Active Substance: RANITIDINE HYDROCHLORIDE
     Indication: Dyspepsia
     Dosage: FREQ- OTHER
     Dates: start: 199101, end: 202001

REACTIONS (5)
  - Breast cancer female [Unknown]
  - Ovarian cancer [Unknown]
  - Uterine cancer [Unknown]
  - Cervix carcinoma [Unknown]
  - Colorectal cancer [Unknown]

NARRATIVE: CASE EVENT DATE: 19970101
